FAERS Safety Report 12234642 (Version 1)
Quarter: 2016Q2

REPORT INFORMATION
  Report Type: Spontaneous
  Country: US (occurrence: None)
  Receive Date: 20160401
  Receipt Date: 20160401
  Transmission Date: 20160815
  Serious: Yes (Hospitalization)
  Sender: FDA-Public Use
  Company Number: None

PATIENT
  Age: 58 Year
  Sex: Male
  Weight: 95.8 kg

DRUGS (1)
  1. ASPIRIN. [Suspect]
     Active Substance: ASPIRIN
     Indication: ANTICOAGULANT THERAPY
     Route: 048
     Dates: start: 20151027

REACTIONS (6)
  - Large intestine polyp [None]
  - Haemorrhoids [None]
  - Haemoglobin decreased [None]
  - Lower gastrointestinal haemorrhage [None]
  - Gastritis [None]
  - Post procedural complication [None]

NARRATIVE: CASE EVENT DATE: 20160131
